FAERS Safety Report 16833926 (Version 5)
Quarter: 2020Q4

REPORT INFORMATION
  Report Type: Spontaneous
  Country: US (occurrence: US)
  Receive Date: 20190920
  Receipt Date: 20201013
  Transmission Date: 20210113
  Serious: Yes (Other)
  Sender: FDA-Public Use
  Company Number: US-PFIZER INC-2019251346

PATIENT
  Age: 71 Year
  Sex: Female

DRUGS (1)
  1. IBRANCE [Suspect]
     Active Substance: PALBOCICLIB
     Indication: BREAST CANCER FEMALE
     Dosage: 100 MG, 1X/DAY (1 CAPSULE WITH FOOD)
     Route: 048
     Dates: start: 20190312

REACTIONS (4)
  - Cancer pain [Unknown]
  - Iron deficiency anaemia [Unknown]
  - Neutropenia [Unknown]
  - Haemorrhage [Unknown]
